FAERS Safety Report 9812363 (Version 2)
Quarter: 2014Q1

REPORT INFORMATION
  Report Type: Spontaneous
  Country: BR (occurrence: BR)
  Receive Date: 20140113
  Receipt Date: 20140228
  Transmission Date: 20141002
  Serious: Yes (Other)
  Sender: FDA-Public Use
  Company Number: BR-BEH-2014039922

PATIENT
  Sex: Male

DRUGS (1)
  1. RHOPHYLAC [Suspect]
     Route: 030

REACTIONS (1)
  - Wrong drug administered [Unknown]
